FAERS Safety Report 6154712-2 (Version None)
Quarter: 2009Q2

REPORT INFORMATION
  Report Type: 
  Country: None (occurrence: None)
  Receive Date: 20090414
  Receipt Date: 20090409
  Transmission Date: 20091009
  Serious: Yes (Death)
  Sender: FDA-Public Use
  Company Number: A0778505A

PATIENT
  Sex: Male
  Weight: 50 kg

DRUGS (2)
  1. ADVAIR HFA [Suspect]
     Indication: EMPHYSEMA
     Dosage: 1PUFF TWICE PER DAY
     Route: 055
     Dates: start: 20090302, end: 20090321
  2. SPIRIVA [Concomitant]
     Dates: start: 20090302, end: 20090321

REACTIONS (2)
  - EMPHYSEMA [None]
  - PNEUMONIA [None]
